FAERS Safety Report 6281085 (Version 1)
Quarter: 2020Q3

REPORT INFORMATION
  Report Type: Spontaneous
  Country: DE (occurrence: DE)
  Receive Date: 20070405
  Receipt Date: 20070405
  Transmission Date: 20201104
  Serious: Yes (Disabling)
  Sender: FDA-Public Use
  Company Number: DE-ROCHE-478726

PATIENT
  Age: 54 Year
  Sex: Female
  Weight: 58 kg

DRUGS (1)
  1. IBANDRONIC ACID. [Suspect]
     Active Substance: IBANDRONIC ACID
     Indication: BONE NEOPLASM
     Dosage: TAKEN ON 12 NOV 04, 13 DEC 04, 7 JAN 05, 31 JAN 05, 2 MAR 05 AND 30 MAR 05.
     Route: 042
     Dates: start: 20041112, end: 20050330

REACTIONS (7)
  - Vomiting [Not Recovered/Not Resolved]
  - Sleep disorder [Recovered/Resolved]
  - Hyperhidrosis [Not Recovered/Not Resolved]
  - Nausea [Not Recovered/Not Resolved]
  - Diarrhoea [Recovered/Resolved]
  - Tooth infection [Unknown]
  - Bone pain [Not Recovered/Not Resolved]
